FAERS Safety Report 5049819-7 (Version None)
Quarter: 2006Q3

REPORT INFORMATION
  Report Type: 
  Country: None (occurrence: None)
  Receive Date: 20060706
  Receipt Date: 20060628
  Transmission Date: 20061208
  Serious: Yes (Other)
  Sender: FDA-Public Use
  Company Number: S06-USA-02237-01

PATIENT
  Age: 81 Year
  Sex: Female

DRUGS (21)
  1. NAMENDA [Suspect]
     Indication: DEMENTIA
     Dosage: 10 MG BID PO
     Route: 048
     Dates: start: 20060607, end: 20060611
  2. NAMENDA [Suspect]
     Indication: DEMENTIA
     Dosage: 5 MG QD PO
     Route: 048
     Dates: start: 20060517, end: 20060523
  3. NAMENDA [Suspect]
     Indication: DEMENTIA
     Dosage: 5 MG BID PO
     Route: 048
     Dates: start: 20060524, end: 20060530
  4. NAMENDA [Suspect]
     Indication: DEMENTIA
     Dosage: 15 MG QD PO
     Route: 048
     Dates: start: 20060531, end: 20060606
  5. HUMULIN 70/30 (HUMAN INSULIN NPH/REGULAR 70/30) [Concomitant]
  6. VERAPAMIL [Concomitant]
  7. ATENOLOL [Concomitant]
  8. CAPTOPRIL [Concomitant]
  9. LIPITOR [Concomitant]
  10. NITROCAP (NITROGLYCERIN) [Concomitant]
  11. CARBIDOPA AND LEVODOPA [Concomitant]
  12. WARFARIN SODIUM [Concomitant]
  13. COSOPT (DORZOLAMIDE/TIMOLOL) [Concomitant]
  14. TRAVATAN [Concomitant]
  15. CLONAZEPAM [Concomitant]
  16. DIGOXIN [Concomitant]
  17. POTASSIUM CHLORIDE [Concomitant]
  18. FUROSEMIDE [Concomitant]
  19. FLUOXETINE [Concomitant]
  20. HYDROCODONE [Concomitant]
  21. LEVOXYL [Concomitant]

REACTIONS (2)
  - BLOOD GLUCOSE INCREASED [None]
  - GLYCOSYLATED HAEMOGLOBIN INCREASED [None]
